FAERS Safety Report 21674273 (Version 2)
Quarter: 2022Q4

REPORT INFORMATION
  Report Type: Spontaneous
  Country: AT (occurrence: AT)
  Receive Date: 20221202
  Receipt Date: 20221202
  Transmission Date: 20230112
  Serious: Yes (Other)
  Sender: FDA-Public Use
  Company Number: AT-CELGENE-AUT-20190104674

PATIENT
  Age: 67 Year
  Sex: Female

DRUGS (5)
  1. POMALIDOMIDE [Suspect]
     Active Substance: POMALIDOMIDE
     Indication: Ocular lymphoma
     Dosage: 4 MILLIGRAM
     Route: 048
  2. DEXAMETHASONE [Suspect]
     Active Substance: DEXAMETHASONE
     Indication: Ocular lymphoma
     Route: 048
  3. RITUXIMAB [Suspect]
     Active Substance: RITUXIMAB
     Indication: Ocular lymphoma
     Dosage: CYCLICAL, Q4W
     Route: 065
  4. TEMOZOLOMIDE [Suspect]
     Active Substance: TEMOZOLOMIDE
     Indication: Ocular lymphoma
     Route: 065
  5. CYTARABINE [Suspect]
     Active Substance: CYTARABINE
     Indication: Ocular lymphoma
     Dosage: BIWEEKLY?CYCLICAL
     Route: 065

REACTIONS (4)
  - Hypogammaglobulinaemia [Recovered/Resolved]
  - Adrenal insufficiency [Recovered/Resolved]
  - Neurotoxicity [Recovered/Resolved]
  - Pneumonia [Recovered/Resolved]
